FAERS Safety Report 8199866-1 (Version None)
Quarter: 2012Q1

REPORT INFORMATION
  Report Type: 
  Country: None (occurrence: None)
  Receive Date: 20120312
  Receipt Date: 20120305
  Transmission Date: 20120608
  Serious: No
  Sender: FDA-Public Use
  Company Number: US-BIOGENIDEC-2012BI008006

PATIENT
  Age: 64 Year
  Sex: Female

DRUGS (1)
  1. TYSABRI [Suspect]
     Indication: MULTIPLE SCLEROSIS
     Route: 042
     Dates: start: 20070925

REACTIONS (8)
  - DIPLOPIA [None]
  - LOSS OF CONTROL OF LEGS [None]
  - FALL [None]
  - NAUSEA [None]
  - DIZZINESS [None]
  - VISION BLURRED [None]
  - HEADACHE [None]
  - HEAD INJURY [None]
